FAERS Safety Report 4927972-0 (Version None)
Quarter: 2006Q1

REPORT INFORMATION
  Report Type: 
  Country: None (occurrence: None)
  Receive Date: 20060223
  Receipt Date: 20060213
  Transmission Date: 20060701
  Serious: Yes (Death, Life-Threatening)
  Sender: FDA-Public Use
  Company Number: 2006022005

PATIENT
  Age: 65 Year
  Sex: Male
  Weight: 80 kg

DRUGS (9)
  1. CLINDAMYCIN HCL [Suspect]
     Indication: ERYSIPELAS
     Dosage: 600 MG (200 MG, 3 IN 1 D), ORAL
     Route: 048
     Dates: start: 20051218
  2. CLINDAMYCIN HCL [Suspect]
     Indication: PNEUMONIA
     Dosage: 600 MG (200 MG, 3 IN 1 D), ORAL
     Route: 048
     Dates: start: 20051218
  3. ACETYLSALICYLIC ACID SRT [Concomitant]
  4. PIRETANIDE (PIRETANIDE) [Concomitant]
  5. ENALAPRIL MALEATE [Concomitant]
  6. NITREPRESS (NITRENDIPINE) [Concomitant]
  7. ALLOPURINOL [Concomitant]
  8. ARTHROTEC [Concomitant]
  9. SPASMEX (TROSPIUM CHLORIDE) [Concomitant]

REACTIONS (15)
  - ACUTE ABDOMEN [None]
  - ANURIA [None]
  - CARDIAC FAILURE [None]
  - CEREBROVASCULAR ACCIDENT [None]
  - CLOSTRIDIUM COLITIS [None]
  - DISSEMINATED INTRAVASCULAR COAGULATION [None]
  - GENERAL PHYSICAL CONDITION ABNORMAL [None]
  - HAEMODIALYSIS [None]
  - MEGACOLON [None]
  - MUCOUS MEMBRANE DISORDER [None]
  - RENAL FAILURE ACUTE [None]
  - RESPIRATORY FAILURE [None]
  - SEPSIS [None]
  - SHOCK [None]
  - SYSTEMIC INFLAMMATORY RESPONSE SYNDROME [None]
